FAERS Safety Report 12474343 (Version 1)
Quarter: 2016Q2

REPORT INFORMATION
  Report Type: Spontaneous
  Country: US (occurrence: None)
  Receive Date: 20160616
  Receipt Date: 20160616
  Transmission Date: 20160815
  Serious: Yes (Other)
  Sender: FDA-Public Use
  Company Number: None

PATIENT
  Age: 64 Year
  Sex: Male
  Weight: 102.06 kg

DRUGS (6)
  1. LEXAPRO [Concomitant]
     Active Substance: ESCITALOPRAM OXALATE
  2. LEVOFLOXACIN 500, 500 MG [Suspect]
     Active Substance: LEVOFLOXACIN
     Indication: ANIMAL BITE
     Route: 048
     Dates: start: 20101102, end: 20151104
  3. TYLENOL [Concomitant]
     Active Substance: ACETAMINOPHEN
  4. GABAPENTIN. [Concomitant]
     Active Substance: GABAPENTIN
  5. XANAX [Concomitant]
     Active Substance: ALPRAZOLAM
  6. MULTI VITAMIN [Concomitant]
     Active Substance: VITAMINS

REACTIONS (1)
  - Paraesthesia [None]

NARRATIVE: CASE EVENT DATE: 20151103
